FAERS Safety Report 15798347 (Version 3)
Quarter: 2019Q1

REPORT INFORMATION
  Report Type: Spontaneous
  Country: US (occurrence: US)
  Receive Date: 20190108
  Receipt Date: 20190204
  Transmission Date: 20190417
  Serious: Yes (Hospitalization)
  Sender: FDA-Public Use
  Company Number: US-SA-2019SA003364

PATIENT
  Age: 28 Year
  Sex: Male
  Weight: 89.6 kg

DRUGS (6)
  1. GABAPENTIN. [Concomitant]
     Active Substance: GABAPENTIN
     Indication: SICKLE CELL DISEASE
     Dosage: 300 MG, Q12H
     Route: 048
     Dates: start: 20180929, end: 20181003
  2. HYDROMORPHONE [Concomitant]
     Active Substance: HYDROMORPHONE
     Dosage: 100 MG
     Route: 042
     Dates: start: 20180927, end: 20181025
  3. GABAPENTIN. [Concomitant]
     Active Substance: GABAPENTIN
     Dosage: 300 MG, Q12H
     Route: 048
     Dates: start: 20181004
  4. HYDROMORPHONE [Concomitant]
     Active Substance: HYDROMORPHONE
     Indication: SICKLE CELL ANAEMIA WITH CRISIS
     Dosage: 2-4 MG, PRN
     Route: 042
     Dates: start: 20180912, end: 20181026
  5. MOZOBIL [Suspect]
     Active Substance: PLERIXAFOR
     Indication: TRANSPLANT
     Dosage: 0.25 MG, 1.15ML
     Route: 058
     Dates: start: 20181002, end: 20181002
  6. HYDROXYUREA. [Concomitant]
     Active Substance: HYDROXYUREA
     Indication: SICKLE CELL DISEASE
     Dosage: 2000 MG, QD
     Route: 048
     Dates: start: 20181101

REACTIONS (1)
  - Pain [Recovered/Resolved]

NARRATIVE: CASE EVENT DATE: 20181002
